FAERS Safety Report 12394982 (Version 1)
Quarter: 2016Q2

REPORT INFORMATION
  Report Type: Spontaneous
  Country: US (occurrence: US)
  Receive Date: 20160523
  Receipt Date: 20160523
  Transmission Date: 20160815
  Serious: No
  Sender: FDA-Public Use
  Company Number: US-ALLERGAN-1651106US

PATIENT
  Sex: Female

DRUGS (1)
  1. KYBELLA [Suspect]
     Active Substance: DEOXYCHOLIC ACID
     Indication: PRODUCT USED FOR UNKNOWN INDICATION
     Dosage: 5.4 ML, SINGLE
     Route: 058
     Dates: start: 20160316, end: 20160316

REACTIONS (1)
  - Nerve injury [Unknown]

NARRATIVE: CASE EVENT DATE: 20160316
